FAERS Safety Report 17398725 (Version 1)
Quarter: 2020Q1

REPORT INFORMATION
  Report Type: Spontaneous
  Country: US (occurrence: US)
  Receive Date: 20200210
  Receipt Date: 20200210
  Transmission Date: 20200409
  Serious: No
  Sender: FDA-Public Use
  Company Number: US-VAYAPHARMA-2018-US-022078

PATIENT
  Age: 71 Year
  Sex: Female
  Weight: 48.99 kg

DRUGS (9)
  1. VAYACOG (NON-SPECIFIC) [Suspect]
     Active Substance: DOCONEXENT\ICOSAPENT\PHOSPHATIDYL SERINE
     Indication: LIPID METABOLISM DISORDER
     Dosage: 1 CAP DAILY AT NIGHT
     Route: 048
     Dates: start: 20181015, end: 20181029
  2. MIRTAZAPINE. [Concomitant]
     Active Substance: MIRTAZAPINE
  3. CARBIDOPA-LEVODOPA [Concomitant]
     Active Substance: CARBIDOPA\LEVODOPA
  4. AMANTADINE. [Concomitant]
     Active Substance: AMANTADINE HYDROCHLORIDE
  5. RASAGILINE. [Concomitant]
     Active Substance: RASAGILINE
  6. CLONAZEPAM. [Concomitant]
     Active Substance: CLONAZEPAM
  7. MEMANTINE. [Concomitant]
     Active Substance: MEMANTINE
  8. MULTIVITAMIN [Concomitant]
     Active Substance: VITAMINS
  9. LEPROZOLE [Concomitant]

REACTIONS (1)
  - Hallucination [Recovered/Resolved]

NARRATIVE: CASE EVENT DATE: 20181018
